FAERS Safety Report 4488427-3 (Version None)
Quarter: 2004Q4

REPORT INFORMATION
  Report Type: 
  Country: None (occurrence: None)
  Receive Date: 20041026
  Receipt Date: 20041013
  Transmission Date: 20050328
  Serious: Yes (Congenital Anomaly, Other)
  Sender: FDA-Public Use
  Company Number: 200409149

PATIENT
  Sex: Female

DRUGS (1)
  1. TAZORAC [Suspect]
     Indication: ACNE
     Dates: start: 20040301, end: 20040501

REACTIONS (3)
  - ABORTION SPONTANEOUS [None]
  - BLOOD FOLATE DECREASED [None]
  - DRUG EXPOSURE DURING PREGNANCY [None]
